FAERS Safety Report 7274458-7 (Version None)
Quarter: 2011Q1

REPORT INFORMATION
  Report Type: 
  Country: None (occurrence: None)
  Receive Date: 20110204
  Receipt Date: 20110129
  Transmission Date: 20110831
  Serious: Yes (Hospitalization, Other)
  Sender: FDA-Public Use
  Company Number: US-PFIZER INC-2011023280

PATIENT
  Sex: Male

DRUGS (2)
  1. ADVIL [Suspect]
     Indication: OROPHARYNGEAL PAIN
     Dosage: 200 MG, 1X/DAY
     Dates: start: 20110127, end: 20110129
  2. ADVIL [Suspect]
     Indication: SINUS HEADACHE

REACTIONS (3)
  - SOMNOLENCE [None]
  - HALLUCINATION [None]
  - CONFUSIONAL STATE [None]
